FAERS Safety Report 9393958 (Version 2)
Quarter: 2013Q3

REPORT INFORMATION
  Report Type: Spontaneous
  Country: JP (occurrence: JP)
  Receive Date: 20130710
  Receipt Date: 20130717
  Transmission Date: 20140515
  Serious: Yes (Death, Other)
  Sender: FDA-Public Use
  Company Number: PHHY2013JP072684

PATIENT
  Age: 51 Year
  Sex: Female

DRUGS (1)
  1. CARBOPLATIN SANDOZ [Suspect]

REACTIONS (4)
  - Shock haemorrhagic [Fatal]
  - Renal failure acute [Unknown]
  - Urine output decreased [Unknown]
  - Renal impairment [Unknown]
